FAERS Safety Report 8257090-8 (Version None)
Quarter: 2012Q2

REPORT INFORMATION
  Report Type: 
  Country: None (occurrence: None)
  Receive Date: 20120403
  Receipt Date: 20120323
  Transmission Date: 20120825
  Serious: Yes (Life-Threatening, Hospitalization)
  Sender: FDA-Public Use
  Company Number: RO-JNJFOC-20120313560

PATIENT
  Sex: Male
  Weight: 57 kg

DRUGS (2)
  1. SULFASALAZINE [Concomitant]
     Indication: ANKYLOSING SPONDYLITIS
     Route: 048
     Dates: start: 20090101, end: 20120127
  2. REMICADE [Suspect]
     Indication: ANKYLOSING SPONDYLITIS
     Dosage: 4 BOTTLES X 100 MG
     Route: 042
     Dates: start: 20090901, end: 20111221

REACTIONS (1)
  - DISSEMINATED TUBERCULOSIS [None]
